FAERS Safety Report 25976413 (Version 1)
Quarter: 2025Q4

REPORT INFORMATION
  Report Type: Spontaneous
  Country: CL (occurrence: CL)
  Receive Date: 20251029
  Receipt Date: 20251029
  Transmission Date: 20260118
  Serious: Yes (Other)
  Sender: NOVO NORDISK
  Company Number: CL-NOVOPROD-1545078

PATIENT
  Age: 40 Year
  Sex: Female

DRUGS (1)
  1. OZEMPIC [Suspect]
     Active Substance: SEMAGLUTIDE
     Indication: Product used for unknown indication
     Dosage: 0.5 (UNITS NOT REPORTED)
     Dates: start: 202508, end: 202510

REACTIONS (5)
  - Lipoedema [Unknown]
  - Arthralgia [Unknown]
  - Discomfort [Unknown]
  - Inflammation [Unknown]
  - Hyperaesthesia [Unknown]
